FAERS Safety Report 5821885-8 (Version None)
Quarter: 2008Q3

REPORT INFORMATION
  Report Type: 
  Country: None (occurrence: None)
  Receive Date: 20080724
  Receipt Date: 20080716
  Transmission Date: 20090109
  Serious: Yes (Other)
  Sender: FDA-Public Use
  Company Number: PHHO2008IT03873

PATIENT
  Sex: Female
  Weight: 57 kg

DRUGS (3)
  1. ZOLEDRONIC ACID [Suspect]
     Indication: METASTASES TO BONE
     Route: 042
     Dates: start: 20070801, end: 20071219
  2. VITAMIN D [Concomitant]
  3. CALCIUM [Concomitant]

REACTIONS (4)
  - DEVICE RELATED INFECTION [None]
  - ERYTHEMA [None]
  - PAIN IN JAW [None]
  - SWELLING [None]
